FAERS Safety Report 9548451 (Version 1)
Quarter: 2013Q3

REPORT INFORMATION
  Report Type: Spontaneous
  Country: US (occurrence: US)
  Receive Date: 20130924
  Receipt Date: 20130924
  Transmission Date: 20140515
  Serious: Yes (Other)
  Sender: FDA-Public Use
  Company Number: US-PFIZER INC-2013272760

PATIENT
  Age: 65 Year
  Sex: Male
  Weight: 86.1 kg

DRUGS (15)
  1. CHANTIX [Suspect]
     Indication: SMOKING CESSATION THERAPY
     Dosage: UNK
     Dates: start: 201309
  2. COUMADIN [Suspect]
     Indication: CARDIAC DISORDER
     Dosage: 5 MG, 1X/DAY
     Route: 048
  3. ASPIRIN [Concomitant]
     Indication: CARDIAC DISORDER
     Dosage: 81 MG, 1X/DAY
  4. PLAVIX [Concomitant]
     Indication: CARDIAC DISORDER
     Dosage: 75 MG, 1X/DAY
  5. NORVASC [Concomitant]
     Indication: HYPERTENSION
     Dosage: 10 MG, 1X/DAY
     Route: 048
  6. NORVASC [Concomitant]
     Indication: CARDIAC DISORDER
  7. COREG [Concomitant]
     Indication: HYPERTENSION
     Dosage: UNK (HALF OF 25MG TABLET), 2X/DAY
     Route: 048
  8. COREG [Concomitant]
     Indication: CARDIAC DISORDER
  9. ALDACTONE [Concomitant]
     Indication: HYPERTENSION
     Dosage: 25 MG, 1X/DAY
  10. ALDACTONE [Concomitant]
     Indication: CARDIAC DISORDER
  11. LASIX [Concomitant]
     Indication: HYPERTENSION
     Dosage: 40 MG, 1X/DAY
     Route: 048
  12. LASIX [Concomitant]
     Indication: CARDIAC DISORDER
  13. KLOR-CON [Concomitant]
     Indication: HYPERTENSION
     Dosage: 20 MG, 1X/DAY
     Route: 048
  14. CATAPRES [Concomitant]
     Indication: HYPERTENSION
     Dosage: 0.2 MG, 3X/DAY
  15. LIPITOR [Concomitant]
     Indication: BLOOD CHOLESTEROL INCREASED
     Dosage: 80 MG, 1X/DAY

REACTIONS (3)
  - Dyspnoea [Not Recovered/Not Resolved]
  - Blood disorder [Unknown]
  - Dizziness [Not Recovered/Not Resolved]
